FAERS Safety Report 6837654-6 (Version None)
Quarter: 2010Q3

REPORT INFORMATION
  Report Type: 
  Country: None (occurrence: None)
  Receive Date: 20100713
  Receipt Date: 20070519
  Transmission Date: 20110219
  Serious: No
  Sender: FDA-Public Use
  Company Number: US-PFIZER INC-2007041155

PATIENT
  Sex: Female
  Weight: 93.2 kg

DRUGS (3)
  1. CHANTIX [Suspect]
     Indication: SMOKING CESSATION THERAPY
     Route: 048
     Dates: start: 20070502
  2. VICODIN [Concomitant]
     Indication: PAIN IN EXTREMITY
  3. IBUPROFEN [Concomitant]

REACTIONS (2)
  - NECK PAIN [None]
  - VOMITING [None]
